FAERS Safety Report 15849713 (Version 1)
Quarter: 2019Q1

REPORT INFORMATION
  Report Type: Report from Study
  Country: US (occurrence: US)
  Receive Date: 20190121
  Receipt Date: 20190121
  Transmission Date: 20190417
  Serious: Yes (Hospitalization)
  Sender: FDA-Public Use
  Company Number: US-MYLANLABS-2019M1003957

PATIENT
  Age: 28 Year
  Sex: Male
  Weight: 835 kg

DRUGS (14)
  1. MEROPENEM. [Concomitant]
     Active Substance: MEROPENEM
     Indication: INFECTIVE PULMONARY EXACERBATION OF CYSTIC FIBROSIS
     Dosage: 2000 MILLIGRAM, QID
     Route: 042
     Dates: start: 20181228
  2. PULMOZYME [Concomitant]
     Active Substance: DORNASE ALFA
     Indication: CYSTIC FIBROSIS LUNG
     Dosage: 1 MILLIGRAM, QD
     Dates: start: 19970108
  3. PRILOSEC [Concomitant]
     Active Substance: OMEPRAZOLE MAGNESIUM
     Dosage: 40 MILLIGRAM, QD
     Route: 048
     Dates: start: 20011109
  4. ALLEGRA [Concomitant]
     Active Substance: FEXOFENADINE HYDROCHLORIDE
     Indication: SEASONAL ALLERGY
     Dosage: 180 MILLIGRAM, QD
     Route: 048
     Dates: start: 20140217
  5. CEFDINIR. [Concomitant]
     Active Substance: CEFDINIR
     Indication: INFECTIVE PULMONARY EXACERBATION OF CYSTIC FIBROSIS
     Dosage: 300 MILLIGRAM, BID
     Route: 048
     Dates: start: 20181217, end: 20181228
  6. TOBI PODHALER [Suspect]
     Active Substance: TOBRAMYCIN
     Indication: PRODUCT USED FOR UNKNOWN INDICATION
     Dosage: 112 MILLIGRAM, 9 MONTH
     Route: 050
     Dates: start: 20181115
  7. CREON [Concomitant]
     Active Substance: PANCRELIPASE AMYLASE\PANCRELIPASE LIPASE\PANCRELIPASE PROTEASE
     Indication: PANCREATIC FAILURE
     Dosage: 7 DOSAGE FORM, QD
     Dates: start: 20091124
  8. TOBRAMYCIN. [Concomitant]
     Active Substance: TOBRAMYCIN
     Indication: INFECTIVE PULMONARY EXACERBATION OF CYSTIC FIBROSIS
     Dosage: 760 MILLIGRAM, QD
     Route: 042
     Dates: start: 20181228
  9. ENOXAPARIN [Concomitant]
     Active Substance: ENOXAPARIN
     Indication: INFECTIVE PULMONARY EXACERBATION OF CYSTIC FIBROSIS
     Dosage: 40 MILLIGRAM, QID
     Route: 058
     Dates: start: 20181228
  10. ALBUTEROL                          /00139501/ [Concomitant]
     Active Substance: ALBUTEROL
     Indication: DYSPNOEA
     Dosage: 2 PUFFS PRO
     Dates: start: 19910425
  11. AQUADEKS                           /07679501/ [Concomitant]
     Active Substance: MINERALS\VITAMINS
     Indication: PANCREATIC FAILURE
     Dosage: 2 DOSAGE FORM
     Route: 048
     Dates: start: 20010531
  12. SYMDES [Concomitant]
     Indication: CYSTIC FIBROSIS LUNG
     Dosage: 100-150 + 150 MG AM + PM
     Route: 048
     Dates: start: 20180405
  13. AZITHROMYCIN ANHYDROUS. [Concomitant]
     Active Substance: AZITHROMYCIN ANHYDROUS
     Indication: CYSTIC FIBROSIS LUNG
     Dosage: 250 MILLIGRAM, QD
     Route: 048
     Dates: start: 20030828
  14. SODIUM CHLORIDE. [Concomitant]
     Active Substance: SODIUM CHLORIDE
     Indication: INFECTIVE PULMONARY EXACERBATION OF CYSTIC FIBROSIS
     Dosage: 10 MILLILITRE, WEEKLY
     Route: 042
     Dates: start: 20181228

REACTIONS (1)
  - Infective pulmonary exacerbation of cystic fibrosis [Recovered/Resolved]

NARRATIVE: CASE EVENT DATE: 20181228
